FAERS Safety Report 5240066-2 (Version None)
Quarter: 2007Q1

REPORT INFORMATION
  Report Type: 
  Country: None (occurrence: None)
  Receive Date: 20070216
  Receipt Date: 20070205
  Transmission Date: 20070707
  Serious: Yes (Hospitalization)
  Sender: FDA-Public Use
  Company Number: JP-PFIZER INC-2007009732

PATIENT
  Sex: Female
  Weight: 48.8 kg

DRUGS (1)
  1. HALCION [Suspect]
     Indication: INSOMNIA
     Dosage: DAILY DOSE:.25MG
     Route: 048
     Dates: start: 20050201, end: 20060510

REACTIONS (5)
  - AGGRESSION [None]
  - DECREASED ACTIVITY [None]
  - DISTURBANCE IN ATTENTION [None]
  - DRUG DEPENDENCE [None]
  - DRUG WITHDRAWAL SYNDROME [None]
